FAERS Safety Report 7956605-4 (Version None)
Quarter: 2011Q4

REPORT INFORMATION
  Report Type: 
  Country: None (occurrence: None)
  Receive Date: 20111205
  Receipt Date: 20111128
  Transmission Date: 20120403
  Serious: Yes (Hospitalization)
  Sender: FDA-Public Use
  Company Number: AU-JNJFOC-20111105775

PATIENT
  Sex: Female
  Weight: 56 kg

DRUGS (2)
  1. RISPERDAL CONSTA [Suspect]
     Indication: PRODUCT USED FOR UNKNOWN INDICATION
     Route: 030
     Dates: start: 20050101
  2. RISPERDAL CONSTA [Suspect]
     Route: 030
     Dates: start: 20090715, end: 20090901

REACTIONS (12)
  - SWELLING FACE [None]
  - DYSARTHRIA [None]
  - INAPPROPRIATE SCHEDULE OF DRUG ADMINISTRATION [None]
  - INCONTINENCE [None]
  - MIGRAINE [None]
  - DIZZINESS [None]
  - NIPPLE PAIN [None]
  - DYSTONIA [None]
  - ARTHRALGIA [None]
  - TRISMUS [None]
  - DYSPNOEA [None]
  - DYSGRAPHIA [None]
